FAERS Safety Report 5572955-3 (Version None)
Quarter: 2007Q4

REPORT INFORMATION
  Report Type: 
  Country: None (occurrence: None)
  Receive Date: 20071219
  Receipt Date: 20071219
  Transmission Date: 20080405
  Serious: Yes (Other)
  Sender: FDA-Public Use
  Company Number: None

PATIENT
  Sex: Male
  Weight: 79.3795 kg

DRUGS (9)
  1. LOXAPINE [Suspect]
     Dosage: 5MG  QID  PO
     Route: 048
  2. RISPERIDONE [Concomitant]
  3. DOCUSATE [Concomitant]
  4. DULCOLAX [Concomitant]
  5. ATENOLOL [Concomitant]
  6. OXAZEPAM [Concomitant]
  7. ASPIRIN [Concomitant]
  8. VITAMIN CAP [Concomitant]
  9. DONEPEZIL HCL [Concomitant]

REACTIONS (5)
  - DEPRESSED LEVEL OF CONSCIOUSNESS [None]
  - HYPERHIDROSIS [None]
  - IRRITABILITY [None]
  - MUSCLE RIGIDITY [None]
  - PYREXIA [None]
